FAERS Safety Report 7126149-0 (Version None)
Quarter: 2010Q4

REPORT INFORMATION
  Report Type: 
  Country: None (occurrence: None)
  Receive Date: 20101129
  Receipt Date: 20101116
  Transmission Date: 20110411
  Serious: Yes (Death)
  Sender: FDA-Public Use
  Company Number: JP-JNJFOC-20101107489

PATIENT
  Age: 65 Year
  Sex: Male

DRUGS (8)
  1. CRAVIT [Suspect]
     Indication: PROSTATITIS
     Route: 048
  2. CRESTOR [Concomitant]
     Route: 065
  3. TAMSULOSIN HCL [Concomitant]
     Route: 065
  4. MOBIC [Concomitant]
     Route: 065
  5. STAYBLA [Concomitant]
     Route: 065
  6. ROHYPNOL [Concomitant]
     Route: 065
  7. DEPAS [Concomitant]
     Route: 065
  8. LENDORMIN [Concomitant]
     Route: 065

REACTIONS (3)
  - DIZZINESS [None]
  - MALAISE [None]
  - PYREXIA [None]
